FAERS Safety Report 9034021 (Version 1)
Quarter: 2013Q2

REPORT INFORMATION
  Report Type: Spontaneous
  Country: US (occurrence: None)
  Receive Date: 20130116
  Receipt Date: 20130116
  Transmission Date: 20140414
  Serious: Yes (Other)
  Sender: FDA-Public Use
  Company Number: None

PATIENT
  Sex: Female
  Weight: 79.52 kg

DRUGS (1)
  1. MONTELUKAST [Suspect]
     Indication: ASTHMA
     Dosage: 10MG ONE PO QD
     Route: 048
     Dates: start: 20121107, end: 20121219

REACTIONS (3)
  - Arthralgia [None]
  - Constipation [None]
  - Muscle spasms [None]
